FAERS Safety Report 6877890-6 (Version None)
Quarter: 2010Q3

REPORT INFORMATION
  Report Type: 
  Country: None (occurrence: None)
  Receive Date: 20100727
  Receipt Date: 20100723
  Transmission Date: 20110219
  Serious: No
  Sender: FDA-Public Use
  Company Number: US-ABBOTT-10P-163-0653886-00

PATIENT
  Sex: Female
  Weight: 48.124 kg

DRUGS (3)
  1. SYNTHROID [Suspect]
     Indication: HYPOTHYROIDISM
     Dates: start: 20080101, end: 20090101
  2. SYNTHROID [Suspect]
     Dates: start: 20090101, end: 20091101
  3. SYNTHROID [Suspect]
     Dates: start: 20091101

REACTIONS (2)
  - COELIAC DISEASE [None]
  - THYROID FUNCTION TEST ABNORMAL [None]
